FAERS Safety Report 4291042-8 (Version None)
Quarter: 2004Q1

REPORT INFORMATION
  Report Type: 
  Country: None (occurrence: None)
  Receive Date: 20040209
  Receipt Date: 20040128
  Transmission Date: 20041129
  Serious: Yes (Life-Threatening, Hospitalization, Other)
  Sender: FDA-Public Use
  Company Number: NL-JNJFOC-20031100767

PATIENT
  Age: 56 Year
  Sex: Male

DRUGS (12)
  1. REMICADE [Suspect]
     Indication: CHOLANGITIS SCLEROSING
     Dosage: SEE IMAGE                INTRAVENOUS
     Route: 042
     Dates: start: 20030724, end: 20030724
  2. REMICADE [Suspect]
     Indication: CHOLANGITIS SCLEROSING
     Dosage: SEE IMAGE                INTRAVENOUS
     Route: 042
     Dates: start: 20030806, end: 20030806
  3. REMICADE [Suspect]
     Indication: CHOLANGITIS SCLEROSING
     Dosage: SEE IMAGE                INTRAVENOUS
     Route: 042
     Dates: start: 20030903, end: 20030903
  4. REMICADE [Suspect]
     Indication: CHOLANGITIS SCLEROSING
     Dosage: SEE IMAGE                INTRAVENOUS
     Route: 042
     Dates: start: 20031015, end: 20031015
  5. PLACEBO (PLACEBO) LYOPHILIZED POWDER [Suspect]
     Indication: CHOLANGITIS SCLEROSING
     Dosage: SEE IMAGE                        INTRAVENOUS
     Route: 042
     Dates: start: 20030724, end: 20030724
  6. PLACEBO (PLACEBO) LYOPHILIZED POWDER [Suspect]
     Indication: CHOLANGITIS SCLEROSING
     Dosage: SEE IMAGE                        INTRAVENOUS
     Route: 042
     Dates: start: 20030806, end: 20030806
  7. PLACEBO (PLACEBO) LYOPHILIZED POWDER [Suspect]
     Indication: CHOLANGITIS SCLEROSING
     Dosage: SEE IMAGE                        INTRAVENOUS
     Route: 042
     Dates: start: 20030903, end: 20030903
  8. PLACEBO (PLACEBO) LYOPHILIZED POWDER [Suspect]
     Indication: CHOLANGITIS SCLEROSING
     Dosage: SEE IMAGE                        INTRAVENOUS
     Route: 042
     Dates: start: 20031015, end: 20031015
  9. QUESTRAN [Concomitant]
  10. SALOFALK (AMINOSALICYLIC ACID) [Concomitant]
  11. PARACETAMOL (PARACETAMOL) [Concomitant]
  12. DI-ADRESON (PREDNISONE) [Concomitant]

REACTIONS (3)
  - GASTRITIS [None]
  - INFLUENZA LIKE ILLNESS [None]
  - INTESTINAL FUNCTIONAL DISORDER [None]
